FAERS Safety Report 8149015 (Version 3)
Quarter: 2013Q3

REPORT INFORMATION
  Report Type: Spontaneous
  Country: US (occurrence: US)
  Receive Date: 20110922
  Receipt Date: 20130730
  Transmission Date: 20140515
  Serious: Yes (Other)
  Sender: FDA-Public Use
  Company Number: US-ASTRAZENECA-2011SE12715

PATIENT
  Sex: Male

DRUGS (15)
  1. SEROQUEL [Suspect]
     Route: 048
     Dates: start: 20020818
  2. SEROQUEL [Suspect]
     Route: 048
     Dates: start: 20061002
  3. EFFEXOR XR [Concomitant]
     Dates: start: 20070907
  4. EFFEXOR XR [Concomitant]
     Route: 048
  5. PREVACID [Concomitant]
     Dates: start: 20080506
  6. CLONAZEPAM [Concomitant]
     Dates: start: 20080506
  7. OXYCODONE/APAP/OXYCODONE ACETAMINOPHEN [Concomitant]
     Dosage: 10MG/325MG TK1 TO 2 TS PO Q 4 H PRN
     Dates: start: 20080506
  8. PAROXETINE ER [Concomitant]
     Dates: start: 20090303
  9. MIRTAZAPINE [Concomitant]
     Dates: start: 20090203
  10. AMOX-CLAV [Concomitant]
     Dates: start: 20090203
  11. ALEVE [Concomitant]
     Route: 048
  12. MOTRIN [Concomitant]
     Route: 048
     Dates: start: 20071116
  13. PAXIL [Concomitant]
     Dates: start: 20060625
  14. RISPERDAL [Concomitant]
     Dates: start: 20060731
  15. LAMICTAL [Concomitant]
     Dates: start: 20080808

REACTIONS (3)
  - Pancreatitis [Unknown]
  - Diabetic coma [Unknown]
  - Type 2 diabetes mellitus [Unknown]
